FAERS Safety Report 18381794 (Version 1)
Quarter: 2020Q4

REPORT INFORMATION
  Report Type: Spontaneous
  Country: US (occurrence: US)
  Receive Date: 20201013
  Receipt Date: 20201013
  Transmission Date: 20210114
  Serious: No
  Sender: FDA-Public Use
  Company Number: None

PATIENT
  Age: 86 Year
  Sex: Male
  Weight: 92.25 kg

DRUGS (9)
  1. AZITHROMYCIN ANHYDROUS. [Concomitant]
     Active Substance: AZITHROMYCIN ANHYDROUS
  2. ELIQUIS [Concomitant]
     Active Substance: APIXABAN
  3. NOVOLOG [Concomitant]
     Active Substance: INSULIN ASPART
  4. ATORVASTATIN [Concomitant]
     Active Substance: ATORVASTATIN
  5. SOTALOL. [Concomitant]
     Active Substance: SOTALOL
  6. LANTUS [Concomitant]
     Active Substance: INSULIN GLARGINE
  7. VITAMIN D [Concomitant]
     Active Substance: VITAMIN D NOS
  8. CAPECITABINE. [Suspect]
     Active Substance: CAPECITABINE
     Indication: COLORECTAL CANCER
     Dosage: ?          OTHER FREQUENCY:BID 14/21 DAYS;?
     Route: 048
     Dates: start: 20200812, end: 20201013
  9. GABAPENTIN. [Concomitant]
     Active Substance: GABAPENTIN

REACTIONS (1)
  - Diarrhoea [None]

NARRATIVE: CASE EVENT DATE: 20201013
